FAERS Safety Report 12659046 (Version 1)
Quarter: 2016Q3

REPORT INFORMATION
  Report Type: Spontaneous
  Country: US (occurrence: None)
  Receive Date: 20160816
  Receipt Date: 20160816
  Transmission Date: 20161109
  Serious: Yes (Disabling)
  Sender: FDA-Public Use
  Company Number: None

PATIENT
  Age: 65 Year
  Sex: Female
  Weight: 49.44 kg

DRUGS (20)
  1. PROLIA [Concomitant]
     Active Substance: DENOSUMAB
  2. B12 SHOTS [Concomitant]
     Active Substance: CYANOCOBALAMIN
  3. IMODIUM [Concomitant]
     Active Substance: LOPERAMIDE HYDROCHLORIDE
  4. MUSCLE RUB [Concomitant]
     Active Substance: MENTHOL\METHYL SALICYLATE
  5. MACROBID [Suspect]
     Active Substance: NITROFURANTOIN\NITROFURANTOIN MONOHYDRATE
     Indication: URINARY TRACT INFECTION
     Dosage: MACROBID - 50 MG ?2 PER DAY MAINLY BEDTIME?BY MOUTH
     Route: 048
     Dates: start: 20100601, end: 20160615
  6. ASPIRIN. [Concomitant]
     Active Substance: ASPIRIN
  7. METAMUCIL [Concomitant]
     Active Substance: PLANTAGO SEED
  8. LACHYTRIN CREAM [Concomitant]
  9. BENADRYL [Concomitant]
     Active Substance: DIPHENHYDRAMINE HYDROCHLORIDE
  10. SLOW RELEASE FE [Concomitant]
  11. ALAVERT ALLERGY [Concomitant]
     Active Substance: LORATADINE
  12. NITROFURANTOIN. [Suspect]
     Active Substance: NITROFURANTOIN
  13. MACRODANTIN [Suspect]
     Active Substance: NITROFURANTOIN
  14. CITRACAL [Concomitant]
     Active Substance: CALCIUM CITRATE
  15. VITAMIN D [Concomitant]
     Active Substance: CHOLECALCIFEROL
  16. ESTERACE CREAM [Concomitant]
  17. LYRICA [Concomitant]
     Active Substance: PREGABALIN
  18. ZINC LOZENGES [Concomitant]
  19. ALEVE [Concomitant]
     Active Substance: NAPROXEN SODIUM
  20. ONE A DAY SORVIT [Concomitant]

REACTIONS (8)
  - Dyspnoea [None]
  - Pelvic pain [None]
  - Chest X-ray abnormal [None]
  - Burning sensation [None]
  - Cough [None]
  - Neuropathy peripheral [None]
  - Infection [None]
  - Hypoaesthesia [None]

NARRATIVE: CASE EVENT DATE: 20150326
